FAERS Safety Report 4811541-7 (Version None)
Quarter: 2005Q4

REPORT INFORMATION
  Report Type: 
  Country: None (occurrence: None)
  Receive Date: 20051025
  Receipt Date: 20051017
  Transmission Date: 20060501
  Serious: Yes (Hospitalization)
  Sender: FDA-Public Use
  Company Number: MEDI-0003718

PATIENT
  Age: 65 Year
  Sex: Male

DRUGS (4)
  1. ETHYOL [Suspect]
     Indication: CHEMOTHERAPY
     Dosage: 375 MILLIGRAMS ON 8/24/05 + 8/31/05; 250 MILLIGRAMS ALL OTHER DATES, 5 IN 1 WK, SUBCUTANEOUS
     Route: 058
     Dates: start: 20050824, end: 20050909
  2. ETHYOL [Suspect]
     Indication: RADIOTHERAPY
     Dosage: 375 MILLIGRAMS ON 8/24/05 + 8/31/05; 250 MILLIGRAMS ALL OTHER DATES, 5 IN 1 WK, SUBCUTANEOUS
     Route: 058
     Dates: start: 20050824, end: 20050909
  3. RADIATION THERAPY [Concomitant]
  4. PACLITAXEL [Concomitant]

REACTIONS (2)
  - STOMATITIS [None]
  - THERAPY NON-RESPONDER [None]
